FAERS Safety Report 26099249 (Version 2)
Quarter: 2025Q4

REPORT INFORMATION
  Report Type: Spontaneous
  Country: US (occurrence: US)
  Receive Date: 20251128
  Receipt Date: 20251219
  Transmission Date: 20260117
  Serious: No
  Sender: GLAXOSMITHKLINE
  Company Number: US-GSK-US2025151366

PATIENT
  Sex: Male

DRUGS (1)
  1. BREO ELLIPTA [Suspect]
     Active Substance: FLUTICASONE FUROATE\VILANTEROL TRIFENATATE
     Indication: Asthma
     Dosage: BREO ELLIPTA 100/25 MCG INH PWDR 30 DS NDPI TRD PACK X 1

REACTIONS (6)
  - Dyspnoea [Unknown]
  - Heart rate increased [Recovered/Resolved]
  - Drug ineffective [Unknown]
  - Overdose [Unknown]
  - Product dose omission issue [Unknown]
  - Product complaint [Unknown]
